FAERS Safety Report 18903290 (Version 2)
Quarter: 2021Q2

REPORT INFORMATION
  Report Type: Spontaneous
  Country: US (occurrence: US)
  Receive Date: 20210217
  Receipt Date: 20210405
  Transmission Date: 20210717
  Serious: Yes (Other)
  Sender: FDA-Public Use
  Company Number: US-GLAXOSMITHKLINE-US2021GSK044849

PATIENT
  Sex: Male

DRUGS (10)
  1. ZANTAC [Suspect]
     Active Substance: RANITIDINE HYDROCHLORIDE
     Indication: ABDOMINAL DISCOMFORT
  2. RANITIDINE. [Suspect]
     Active Substance: RANITIDINE
     Indication: ILL-DEFINED DISORDER
  3. ZANTAC [Suspect]
     Active Substance: RANITIDINE HYDROCHLORIDE
     Indication: ILL-DEFINED DISORDER
     Dosage: 150 MG, QD
     Route: 065
     Dates: start: 200601, end: 201401
  4. RANITIDINE. [Suspect]
     Active Substance: RANITIDINE
     Indication: ILL-DEFINED DISORDER
     Dosage: 150 MG, QD
     Route: 065
     Dates: start: 200601, end: 201401
  5. RANITIDINE CAPSULE [Suspect]
     Active Substance: RANITIDINE
     Indication: ILL-DEFINED DISORDER
     Dosage: 150 MG, QD
     Route: 065
     Dates: start: 200601, end: 201401
  6. RANITIDINE. [Suspect]
     Active Substance: RANITIDINE
     Indication: ILL-DEFINED DISORDER
     Dosage: 150 MG, QD
     Route: 065
     Dates: start: 200601, end: 201401
  7. RANITIDINE. [Suspect]
     Active Substance: RANITIDINE
     Indication: ILL-DEFINED DISORDER
     Dosage: 150 MG, QD
     Route: 065
     Dates: start: 200601, end: 201401
  8. RANITIDINE. [Suspect]
     Active Substance: RANITIDINE
     Indication: ABDOMINAL DISCOMFORT
  9. ZANTAC [Suspect]
     Active Substance: RANITIDINE HYDROCHLORIDE
     Indication: ILL-DEFINED DISORDER
     Dosage: 150 MG, QD
     Route: 065
     Dates: start: 200601, end: 201401
  10. RANITIDINE CAPSULE [Suspect]
     Active Substance: RANITIDINE
     Indication: ABDOMINAL DISCOMFORT

REACTIONS (1)
  - Pancreatic carcinoma [Unknown]
